FAERS Safety Report 14562548 (Version 3)
Quarter: 2018Q3

REPORT INFORMATION
  Report Type: Spontaneous
  Country: US (occurrence: US)
  Receive Date: 20180222
  Receipt Date: 20180706
  Transmission Date: 20181010
  Serious: Yes (Other)
  Sender: FDA-Public Use
  Company Number: US-DSJP-DSU-2017-149438

PATIENT

DRUGS (3)
  1. BENICAR [Suspect]
     Active Substance: OLMESARTAN MEDOXOMIL
     Indication: PRODUCT USED FOR UNKNOWN INDICATION
     Dosage: 20 MG, UNK
     Dates: start: 20100923, end: 20170214
  2. BENICAR HCT [Suspect]
     Active Substance: HYDROCHLOROTHIAZIDE\OLMESARTAN MEDOXOMIL
     Indication: PRODUCT USED FOR UNKNOWN INDICATION
     Dosage: 20?12.5 MG, UNK
     Dates: start: 20100923, end: 20170214
  3. AZOR [Suspect]
     Active Substance: AMLODIPINE BESYLATE\OLMESARTAN MEDOXOMIL
     Indication: PRODUCT USED FOR UNKNOWN INDICATION
     Dosage: 5/40 MG,UNK
     Dates: start: 20100923, end: 20170214

REACTIONS (6)
  - Sprue-like enteropathy [Recovered/Resolved]
  - Intestinal metaplasia [Recovering/Resolving]
  - Gastric varices [Unknown]
  - Diverticulitis [Recovered/Resolved]
  - Constipation [Unknown]
  - Barrett^s oesophagus [Recovering/Resolving]

NARRATIVE: CASE EVENT DATE: 20100923
